FAERS Safety Report 7288254-8 (Version None)
Quarter: 2011Q1

REPORT INFORMATION
  Report Type: 
  Country: None (occurrence: None)
  Receive Date: 20110211
  Receipt Date: 20110201
  Transmission Date: 20110831
  Serious: Yes (Hospitalization)
  Sender: FDA-Public Use
  Company Number: DE-JNJFOC-20040505697

PATIENT
  Sex: Female

DRUGS (20)
  1. METHOTREXATE [Concomitant]
  2. METHOTREXATE [Concomitant]
  3. REMICADE [Suspect]
     Route: 042
  4. REMICADE [Suspect]
     Route: 042
  5. REMICADE [Suspect]
     Route: 042
  6. REMICADE [Suspect]
     Route: 042
  7. METHOTREXATE [Concomitant]
  8. METHOTREXATE [Concomitant]
  9. REMICADE [Suspect]
     Route: 042
  10. REMICADE [Suspect]
     Route: 042
  11. METHOTREXATE [Concomitant]
  12. METHOTREXATE [Concomitant]
  13. REMICADE [Suspect]
     Route: 042
  14. METHOTREXATE [Concomitant]
  15. METHOTREXATE [Concomitant]
  16. ADALIMUMAB [Concomitant]
  17. REMICADE [Suspect]
     Route: 042
  18. REMICADE [Suspect]
     Indication: RHEUMATOID ARTHRITIS
     Route: 042
  19. METHOTREXATE [Concomitant]
  20. METHOTREXATE [Concomitant]

REACTIONS (4)
  - SYNOVECTOMY [None]
  - JOINT RANGE OF MOTION DECREASED [None]
  - TENDON OPERATION [None]
  - ARTHRODESIS [None]
